FAERS Safety Report 9045805 (Version 1)
Quarter: 2013Q1

REPORT INFORMATION
  Report Type: Report from Study
  Country: US (occurrence: US)
  Receive Date: 20130201
  Receipt Date: 20130201
  Transmission Date: 20140127
  Serious: No
  Sender: FDA-Public Use
  Company Number: US-ABBOTT-12P-163-1004978-00

PATIENT
  Age: 47 None
  Sex: Male
  Weight: 98.06 kg

DRUGS (11)
  1. HUMIRA [Suspect]
     Indication: CROHN^S DISEASE
     Route: 058
     Dates: start: 20121106, end: 20121106
  2. HUMIRA [Suspect]
     Route: 058
     Dates: start: 20121120, end: 20121120
  3. HUMIRA [Suspect]
     Route: 058
  4. OMEPRAZOLE [Concomitant]
     Indication: GASTROOESOPHAGEAL REFLUX DISEASE
  5. XANAX [Concomitant]
     Indication: BIPOLAR DISORDER
  6. XANAX [Concomitant]
     Indication: ANXIETY
  7. AMBIEN [Concomitant]
     Indication: INSOMNIA
  8. TYLENOL [Concomitant]
     Indication: PAIN
  9. PRILOSEC [Concomitant]
     Indication: GASTROOESOPHAGEAL REFLUX DISEASE
  10. MULTIPLE VITAMINS [Concomitant]
     Indication: PRODUCT USED FOR UNKNOWN INDICATION
  11. UNKNOWN OVER THE COUNTER SLEEP AID [Concomitant]
     Indication: PRODUCT USED FOR UNKNOWN INDICATION

REACTIONS (11)
  - Fistula discharge [Unknown]
  - Injection site discomfort [Recovered/Resolved]
  - Abdominal discomfort [Unknown]
  - Diarrhoea [Recovered/Resolved]
  - Constipation [Unknown]
  - Flatulence [Unknown]
  - Rectal discharge [Unknown]
  - Muscle spasms [Unknown]
  - Rectal haemorrhage [Unknown]
  - Pyrexia [Not Recovered/Not Resolved]
  - Dysuria [Not Recovered/Not Resolved]
